FAERS Safety Report 4742385-2 (Version None)
Quarter: 2005Q3

REPORT INFORMATION
  Report Type: 
  Country: None (occurrence: None)
  Receive Date: 20050811
  Receipt Date: 20050808
  Transmission Date: 20060218
  Serious: Yes (Hospitalization, Disabling)
  Sender: FDA-Public Use
  Company Number: JP-SP-2005-01523

PATIENT
  Age: 79 Year
  Sex: Female

DRUGS (2)
  1. IMMUCYST [Suspect]
     Indication: BLADDER CANCER
     Route: 043
     Dates: start: 20050426, end: 20050621
  2. IMMUCYST [Suspect]
     Route: 043
     Dates: start: 20050426, end: 20050621

REACTIONS (5)
  - ANAEMIA [None]
  - BLADDER TAMPONADE [None]
  - HAEMATURIA [None]
  - POSTRENAL FAILURE [None]
  - URINARY INCONTINENCE [None]
